FAERS Safety Report 7687884-9 (Version None)
Quarter: 2011Q3

REPORT INFORMATION
  Report Type: 
  Country: None (occurrence: None)
  Receive Date: 20110817
  Receipt Date: 20110809
  Transmission Date: 20111222
  Serious: Yes (Life-Threatening, Other)
  Sender: FDA-Public Use
  Company Number: US-JNJFOC-20110805038

PATIENT
  Age: 5 Decade
  Sex: Male

DRUGS (1)
  1. NUCYNTA [Suspect]
     Indication: PRODUCT USED FOR UNKNOWN INDICATION
     Route: 048
     Dates: start: 20110101

REACTIONS (3)
  - HEPATIC FAILURE [None]
  - ANAPHYLACTIC SHOCK [None]
  - RENAL FAILURE [None]
